FAERS Safety Report 22828015 (Version 4)
Quarter: 2024Q1

REPORT INFORMATION
  Report Type: Spontaneous
  Country: US (occurrence: US)
  Receive Date: 20230816
  Receipt Date: 20240105
  Transmission Date: 20240409
  Serious: Yes (Life-Threatening, Other)
  Sender: FDA-Public Use
  Company Number: US-PFIZER INC-PV202300139989

PATIENT
  Age: 92 Year
  Sex: Female

DRUGS (1)
  1. IBRANCE [Suspect]
     Active Substance: PALBOCICLIB
     Dosage: 75 MG, CYCLIC (7 DAYS OFF, REPEAT EVERY 28 DAYS )
     Route: 048

REACTIONS (6)
  - Device related infection [Unknown]
  - Bacterial infection [Unknown]
  - Weight increased [Unknown]
  - Liver disorder [Unknown]
  - Neoplasm recurrence [Unknown]
  - Fatigue [Unknown]

NARRATIVE: CASE EVENT DATE: 20230705
